FAERS Safety Report 7647207-8 (Version None)
Quarter: 2011Q3

REPORT INFORMATION
  Report Type: 
  Country: None (occurrence: None)
  Receive Date: 20110801
  Receipt Date: 20110712
  Transmission Date: 20111222
  Serious: No
  Sender: FDA-Public Use
  Company Number: US-B.I. PHARMACEUTICALS,INC./RIDGEFIELD-2011-BP-17620BP

PATIENT
  Sex: Male

DRUGS (11)
  1. METFORMIN HCL [Concomitant]
     Indication: TYPE 1 DIABETES MELLITUS
     Dates: start: 19810101
  2. MULTI-VITAMIN [Concomitant]
     Indication: SUPPLEMENTATION THERAPY
     Route: 048
  3. LENTE [Concomitant]
     Indication: TYPE 1 DIABETES MELLITUS
     Route: 058
  4. CHELATION [Concomitant]
     Indication: CHEST PAIN
     Route: 048
  5. SAW PALMETTO [Concomitant]
     Indication: SUPPLEMENTATION THERAPY
     Route: 048
  6. IMIPRAMINE [Concomitant]
     Indication: ANXIETY
     Dosage: 50 MG
     Route: 048
     Dates: start: 19810101
  7. IMIPRAMINE [Concomitant]
     Indication: DEPRESSION
  8. AGGRENOX [Suspect]
     Indication: CEREBROVASCULAR ACCIDENT PROPHYLAXIS
     Route: 048
     Dates: start: 20101201
  9. LANTUS [Concomitant]
     Indication: TYPE 1 DIABETES MELLITUS
     Dates: start: 19850101
  10. METOPROLOL TARTRATE [Concomitant]
     Indication: HYPERTENSION
     Route: 048
  11. CELEBREX [Concomitant]
     Indication: ARTHRITIS
     Dosage: 400 MG
     Route: 048

REACTIONS (3)
  - VISION BLURRED [None]
  - EYE HAEMORRHAGE [None]
  - IRIS HAEMORRHAGE [None]
